FAERS Safety Report 7970922 (Version 2)
Quarter: 2012Q4

REPORT INFORMATION
  Report Type: 
  Country: CN (occurrence: CN)
  Receive Date: 20110602
  Receipt Date: 20121227
  Transmission Date: 20130627
  Serious: Yes (Other)
  Sender: FDA-Public Use
  Company Number: PHHY2011CN31811

PATIENT
  Sex: Male

DRUGS (2)
  1. VALSARTAN [Suspect]
     Indication: HYPERTENSION
     Dosage: 80 mg, QD
     Route: 048
     Dates: start: 20040315, end: 20040317
  2. NIMODIPINE [Suspect]
     Dosage: 30 mg, TID
     Route: 048

REACTIONS (11)
  - Anaphylactic reaction [Unknown]
  - Angioedema [Recovered/Resolved]
  - Urticaria [Unknown]
  - Skin discolouration [Unknown]
  - Eyelid oedema [Unknown]
  - Oedema [Unknown]
  - Rash [Unknown]
  - Dermatitis allergic [Unknown]
  - Headache [Unknown]
  - Dizziness [Recovered/Resolved]
  - Blood pressure increased [Unknown]
